FAERS Safety Report 11680977 (Version 1)
Quarter: 2015Q4

REPORT INFORMATION
  Report Type: Spontaneous
  Country: JP (occurrence: JP)
  Receive Date: 20151029
  Receipt Date: 20151029
  Transmission Date: 20160304
  Serious: Yes (Other)
  Sender: FDA-Public Use
  Company Number: JP-ORION CORPORATION ORION PHARMA-ENT 2015-1016

PATIENT
  Sex: Female

DRUGS (3)
  1. REQUIP [Concomitant]
     Active Substance: ROPINIROLE HYDROCHLORIDE
     Route: 065
  2. LEVODOPA [Concomitant]
     Active Substance: LEVODOPA
     Route: 065
  3. COMTAN [Suspect]
     Active Substance: ENTACAPONE
     Indication: PARKINSON^S DISEASE
     Route: 048

REACTIONS (3)
  - Sudden onset of sleep [Unknown]
  - Dyskinesia [Unknown]
  - Road traffic accident [Unknown]

NARRATIVE: CASE EVENT DATE: 20151017
